FAERS Safety Report 8172478-1 (Version None)
Quarter: 2012Q1

REPORT INFORMATION
  Report Type: 
  Country: None (occurrence: None)
  Receive Date: 20120227
  Receipt Date: 20120227
  Transmission Date: 20120608
  Serious: Yes (Life-Threatening)
  Sender: FDA-Public Use
  Company Number: None

PATIENT
  Sex: Female
  Weight: 52.1637 kg

DRUGS (2)
  1. CALCIUM 750 MG + VIT D 500 IU, + K 40 MG [Suspect]
     Indication: OSTEOPOROSIS
     Dosage: CAL + D + K ONLY HAD TAKE 1 PILL 2 DAYS ORAL
     Route: 048
     Dates: start: 20120116, end: 20120117
  2. PROLIA [Suspect]
     Indication: OSTEOPOROSIS
     Dosage: SUBDERM
     Route: 059
     Dates: start: 20120104

REACTIONS (7)
  - NAUSEA [None]
  - MUSCLE SPASMS [None]
  - PAIN IN EXTREMITY [None]
  - MUSCULAR WEAKNESS [None]
  - DIARRHOEA [None]
  - ARTHROPATHY [None]
  - VOMITING [None]
